FAERS Safety Report 25472497 (Version 1)
Quarter: 2025Q2

REPORT INFORMATION
  Report Type: Spontaneous
  Country: US (occurrence: US)
  Receive Date: 20250624
  Receipt Date: 20250624
  Transmission Date: 20250717
  Serious: No
  Sender: ROCHE
  Company Number: US-ROCHE-10000319525

PATIENT
  Sex: Female

DRUGS (2)
  1. ITOVEBI [Suspect]
     Active Substance: INAVOLISIB
     Indication: Breast cancer metastatic
     Route: 048
  2. ITOVEBI [Suspect]
     Active Substance: INAVOLISIB
     Route: 048

REACTIONS (1)
  - Hyperglycaemia [Unknown]
